FAERS Safety Report 18771711 (Version 2)
Quarter: 2021Q1

REPORT INFORMATION
  Report Type: Spontaneous
  Country: IE (occurrence: IE)
  Receive Date: 20210122
  Receipt Date: 20210220
  Transmission Date: 20210419
  Serious: Yes (Other)
  Sender: FDA-Public Use
  Company Number: IE-AMGEN-IRLSP2021008911

PATIENT
  Age: 49 Year
  Sex: Female

DRUGS (4)
  1. AMGEVITA [Suspect]
     Active Substance: ADALIMUMAB
     Indication: CONNECTIVE TISSUE DISORDER
     Dosage: 40 MILLIGRAM, Q2WK
     Route: 058
     Dates: start: 20201120, end: 20210101
  2. AMGEVITA [Suspect]
     Active Substance: ADALIMUMAB
     Indication: SACROILIITIS
  3. METHOTREXATE. [Concomitant]
     Active Substance: METHOTREXATE
     Dosage: 20 MILLIGRAM, QWK
     Route: 048
     Dates: start: 20190902
  4. PLAQUENIL [HYDROXYCHLOROQUINE PHOSPHATE] [Concomitant]
     Active Substance: HYDROXYCHLOROQUINE DIPHOSPHATE
     Indication: CONNECTIVE TISSUE DISORDER
     Dosage: 400 MILLIGRAM, QD
     Route: 048
     Dates: start: 20180701, end: 20210107

REACTIONS (13)
  - Migraine [Recovered/Resolved]
  - Muscular weakness [Recovered/Resolved]
  - Dehydration [Recovered/Resolved]
  - Hyperchloraemia [Recovered/Resolved]
  - Thirst [Recovered/Resolved]
  - Dry mouth [Recovered/Resolved]
  - Dry eye [Recovered/Resolved]
  - Ketonuria [Recovered/Resolved]
  - Flushing [Recovered/Resolved]
  - Headache [Recovered/Resolved]
  - Eye pruritus [Recovered/Resolved]
  - Product formulation issue [Recovered/Resolved]
  - Polyuria [Recovered/Resolved]

NARRATIVE: CASE EVENT DATE: 20201221
